FAERS Safety Report 5929625-9 (Version None)
Quarter: 2008Q4

REPORT INFORMATION
  Report Type: 
  Country: None (occurrence: None)
  Receive Date: 20081024
  Receipt Date: 20081010
  Transmission Date: 20090506
  Serious: Yes (Hospitalization)
  Sender: FDA-Public Use
  Company Number: AU-GENENTECH-270048

PATIENT
  Sex: Male

DRUGS (3)
  1. BEVACIZUMAB [Suspect]
     Indication: COLON CANCER
     Dosage: 535 MG, Q3W
     Route: 042
     Dates: start: 20080808
  2. CAPECITABINE [Suspect]
     Indication: COLON CANCER
     Dosage: 1750 MG, UNK
     Route: 048
     Dates: start: 20080808
  3. ZOCOR [Concomitant]
     Indication: DRUG USE FOR UNKNOWN INDICATION
     Dosage: UNK
     Dates: start: 19740101

REACTIONS (1)
  - LOSS OF CONSCIOUSNESS [None]
